FAERS Safety Report 21099629 (Version 1)
Quarter: 2022Q3

REPORT INFORMATION
  Report Type: Spontaneous
  Country: US (occurrence: US)
  Receive Date: 20220719
  Receipt Date: 20220719
  Transmission Date: 20221027
  Serious: No
  Sender: FDA-Public Use
  Company Number: US-TEVA-2022-US-2050322

PATIENT
  Age: 10 Year
  Sex: Male

DRUGS (1)
  1. QVAR REDIHALER [Suspect]
     Active Substance: BECLOMETHASONE DIPROPIONATE
     Indication: Asthma
     Dosage: 80 MICROGRAM DAILY; 40 MCG/DOSE
     Route: 065

REACTIONS (2)
  - COVID-19 [Unknown]
  - Product use in unapproved indication [Unknown]
